FAERS Safety Report 14138864 (Version 1)
Quarter: 2017Q4

REPORT INFORMATION
  Report Type: Spontaneous
  Country: JP (occurrence: JP)
  Receive Date: 20171027
  Receipt Date: 20171027
  Transmission Date: 20180321
  Serious: Yes (Other)
  Sender: FDA-Public Use
  Company Number: JP-PFIZER INC-2017462979

PATIENT
  Age: 57 Year
  Sex: Female

DRUGS (4)
  1. PAZUFLOXACIN [Concomitant]
     Active Substance: PAZUFLOXACIN
     Indication: RICKETTSIOSIS
     Dosage: 1 G, DAILY
  2. METHYLPREDNISOLONE. [Suspect]
     Active Substance: METHYLPREDNISOLONE
     Dosage: 125 MG, DAILY
  3. METHYLPREDNISOLONE. [Suspect]
     Active Substance: METHYLPREDNISOLONE
     Indication: HISTIOCYTOSIS HAEMATOPHAGIC
     Dosage: 1000 MG, DAILY
  4. MINOCYCLINE [Concomitant]
     Active Substance: MINOCYCLINE\MINOCYCLINE HYDROCHLORIDE
     Indication: RICKETTSIOSIS
     Dosage: 100 MG, DAILY

REACTIONS (1)
  - Bronchopulmonary aspergillosis [Recovered/Resolved]
